FAERS Safety Report 5482232-7 (Version None)
Quarter: 2007Q4

REPORT INFORMATION
  Report Type: 
  Country: None (occurrence: None)
  Receive Date: 20071011
  Receipt Date: 20071008
  Transmission Date: 20080405
  Serious: Yes (Death)
  Sender: FDA-Public Use
  Company Number: US-BRISTOL-MYERS SQUIBB COMPANY-13933924

PATIENT

DRUGS (1)
  1. ERBITUX [Suspect]
     Route: 042

REACTIONS (2)
  - HYPERSENSITIVITY [None]
  - INFUSION RELATED REACTION [None]
